FAERS Safety Report 16421653 (Version 2)
Quarter: 2019Q3

REPORT INFORMATION
  Report Type: Spontaneous
  Country: US (occurrence: US)
  Receive Date: 20190612
  Receipt Date: 20190910
  Transmission Date: 20191004
  Serious: Yes (Hospitalization)
  Sender: FDA-Public Use
  Company Number: US-BAUSCH-BL-2019-016674

PATIENT
  Sex: Male

DRUGS (2)
  1. XIFAXAN [Suspect]
     Active Substance: RIFAXIMIN
     Indication: PRODUCT USED FOR UNKNOWN INDICATION
     Route: 065
  2. XIFAXAN [Suspect]
     Active Substance: RIFAXIMIN
     Dosage: RECEIVED DURING THE HOSPITAL TIME
     Route: 065
     Dates: start: 201908, end: 201908

REACTIONS (4)
  - Therapy cessation [Unknown]
  - Product availability issue [Unknown]
  - Hospitalisation [Unknown]
  - Inability to afford medication [Unknown]
